FAERS Safety Report 5078441-1 (Version None)
Quarter: 2006Q3

REPORT INFORMATION
  Report Type: 
  Country: None (occurrence: None)
  Receive Date: 20060808
  Receipt Date: 20060726
  Transmission Date: 20061208
  Serious: Yes (Death)
  Sender: FDA-Public Use
  Company Number: GB200607004482

PATIENT
  Age: 30 Year
  Sex: Female

DRUGS (1)
  1. ZYPREXA [Suspect]
     Dosage: 15 MG
     Dates: start: 20030101

REACTIONS (1)
  - WEIGHT INCREASED [None]
